FAERS Safety Report 4938554-9 (Version None)
Quarter: 2006Q1

REPORT INFORMATION
  Report Type: 
  Country: None (occurrence: None)
  Receive Date: 20060306
  Receipt Date: 20060217
  Transmission Date: 20060701
  Serious: Yes (Other)
  Sender: FDA-Public Use
  Company Number: US200602003854

PATIENT
  Sex: Male

DRUGS (4)
  1. HUMALOG [Suspect]
     Indication: DIABETES MELLITUS
     Dosage: AS NEEDED
     Dates: start: 20040101
  2. HUMULIN 70/30 [Suspect]
     Indication: DIABETES MELLITUS
     Dates: start: 19970101, end: 20040101
  3. HUMULIN N [Suspect]
     Indication: DIABETES MELLITUS
     Dosage: 50 U
     Dates: start: 20040101
  4. AVANDIA                         /UNK/ (ROSIGLITAZONE MALEATE) [Concomitant]

REACTIONS (3)
  - BLOOD GLUCOSE INCREASED [None]
  - CAROTID ARTERY OCCLUSION [None]
  - PHARMACEUTICAL PRODUCT COMPLAINT [None]
